FAERS Safety Report 5164207-0 (Version None)
Quarter: 2006Q4

REPORT INFORMATION
  Report Type: 
  Country: None (occurrence: None)
  Receive Date: 20060918
  Receipt Date: 20051018
  Transmission Date: 20070319
  Serious: Yes (Other)
  Sender: FDA-Public Use
  Company Number: US-JNJFOC-20050804434

PATIENT
  Age: 47 Year
  Sex: Female
  Weight: 62.5964 kg

DRUGS (2)
  1. TOPAMAX [Suspect]
     Indication: EPILEPSY
     Dosage: SEE IMAGE
     Route: 048
     Dates: start: 20000101
  2. TOPAMAX [Suspect]
     Indication: EPILEPSY
     Dosage: SEE IMAGE
     Route: 048
     Dates: start: 20021201

REACTIONS (3)
  - HYPOTENSION [None]
  - SINUS BRADYCARDIA [None]
  - WEIGHT DECREASED [None]
